FAERS Safety Report 8835315 (Version 1)
Quarter: 2012Q4

REPORT INFORMATION
  Report Type: 
  Country: US (occurrence: US)
  Receive Date: 20121011
  Receipt Date: 20121011
  Transmission Date: 20130627
  Serious: Yes (Death)
  Sender: FDA-Public Use
  Company Number: US-BAXTER-2012BAX019614

PATIENT

DRUGS (4)
  1. IFOSFAMIDE [Suspect]
     Indication: SARCOMA
     Route: 042
  2. MESNA [Suspect]
     Indication: SARCOMA
     Route: 042
  3. ADRIAMYCIN [Suspect]
     Indication: SARCOMA
     Route: 042
  4. DACARBAZINE [Suspect]
     Indication: SARCOMA
     Route: 042

REACTIONS (1)
  - Myelodysplastic syndrome [Fatal]
